FAERS Safety Report 5074993-6 (Version None)
Quarter: 2006Q3

REPORT INFORMATION
  Report Type: 
  Country: None (occurrence: None)
  Receive Date: 20060809
  Receipt Date: 20060614
  Transmission Date: 20061208
  Serious: Yes (Other)
  Sender: FDA-Public Use
  Company Number: PHEH2006US07779

PATIENT
  Age: 46 Year
  Sex: Female

DRUGS (5)
  1. ZELNORM [Suspect]
     Indication: IRRITABLE BOWEL SYNDROME
     Dosage: 6 MG, BID
     Route: 048
     Dates: start: 20060608
  2. MIRALAX [Concomitant]
     Dosage: 17 G, BID
     Route: 048
  3. M.V.I. [Concomitant]
  4. SEASONALE [Concomitant]
  5. LEVSIN [Concomitant]
     Dosage: UNK, PRN

REACTIONS (7)
  - ABDOMINAL DISTENSION [None]
  - DIARRHOEA [None]
  - DIZZINESS [None]
  - FATIGUE [None]
  - HAEMORRHOIDS [None]
  - NAUSEA [None]
  - PYREXIA [None]
